FAERS Safety Report 4456739-5 (Version None)
Quarter: 2004Q3

REPORT INFORMATION
  Report Type: 
  Country: None (occurrence: None)
  Receive Date: 20040923
  Receipt Date: 20040914
  Transmission Date: 20050211
  Serious: Yes (Death, Life-Threatening)
  Sender: FDA-Public Use
  Company Number: JP-JNJFOC-20040905788

PATIENT
  Sex: Female

DRUGS (4)
  1. FENTANYL [Suspect]
     Indication: CANCER PAIN
     Route: 062
     Dates: start: 20040226, end: 20040304
  2. MORPHINE SULFATE [Concomitant]
     Indication: CANCER PAIN
     Route: 049
     Dates: start: 20040226, end: 20040226
  3. LACTULOSE [Concomitant]
     Indication: HYPERAMMONAEMIA
     Route: 049
     Dates: start: 20040226, end: 20040304
  4. LACTULOSE [Concomitant]
     Indication: HEPATIC ENCEPHALOPATHY
     Route: 049
     Dates: start: 20040226, end: 20040304

REACTIONS (7)
  - ALANINE AMINOTRANSFERASE INCREASED [None]
  - ASPARTATE AMINOTRANSFERASE INCREASED [None]
  - BLOOD BILIRUBIN INCREASED [None]
  - BLOOD CREATININE INCREASED [None]
  - BLOOD LACTATE DEHYDROGENASE INCREASED [None]
  - BLOOD UREA ABNORMAL [None]
  - HEPATIC FAILURE [None]
